FAERS Safety Report 7375663-1 (Version None)
Quarter: 2011Q1

REPORT INFORMATION
  Report Type: 
  Country: None (occurrence: None)
  Receive Date: 20110317
  Receipt Date: 20110308
  Transmission Date: 20110831
  Serious: Yes (Life-Threatening)
  Sender: FDA-Public Use
  Company Number: 1000019225

PATIENT
  Age: 61 Year
  Sex: Male
  Weight: 80 kg

DRUGS (4)
  1. ROFLUMILAST (ROFLUMILAST) [Suspect]
     Indication: CHRONIC OBSTRUCTIVE PULMONARY DISEASE
     Dosage: 500 MCG, ORAL
     Route: 048
     Dates: start: 20110126, end: 20110307
  2. SPIRIVA [Concomitant]
  3. NOVOPULMON (BUDESONIDE) [Concomitant]
  4. FORMOTOP (FORMOTEROL FUMARATE) [Concomitant]

REACTIONS (1)
  - MYOCARDIAL INFARCTION [None]
